FAERS Safety Report 5717335-2 (Version None)
Quarter: 2008Q2

REPORT INFORMATION
  Report Type: 
  Country: None (occurrence: None)
  Receive Date: 20080424
  Receipt Date: 20080424
  Transmission Date: 20081010
  Serious: Yes (Hospitalization)
  Sender: FDA-Public Use
  Company Number: None

PATIENT
  Age: 89 Year
  Sex: Female

DRUGS (7)
  1. SINEMET [Suspect]
     Indication: PARKINSON'S DISEASE
     Dosage: 50/200MG QID PO
     Route: 048
  2. REQUIP [Suspect]
     Dosage: 4 MG BID PO
     Route: 048
  3. ATENOLOL [Concomitant]
  4. ASPIRIN [Concomitant]
  5. SINEMET [Concomitant]
  6. FLAGYL [Concomitant]
  7. POTASSIUM CHLORIDE [Concomitant]

REACTIONS (4)
  - DEHYDRATION [None]
  - DIARRHOEA [None]
  - HALLUCINATION [None]
  - SKIN ULCER [None]
